FAERS Safety Report 7116725-3 (Version None)
Quarter: 2010Q4

REPORT INFORMATION
  Report Type: 
  Country: None (occurrence: None)
  Receive Date: 20101122
  Receipt Date: 20101112
  Transmission Date: 20110411
  Serious: Yes (Other)
  Sender: FDA-Public Use
  Company Number: PHHY2010US66330

PATIENT
  Sex: Female

DRUGS (6)
  1. EXTAVIA [Suspect]
     Indication: MULTIPLE SCLEROSIS
     Dosage: 0.25 MG, QOD
     Route: 058
     Dates: start: 20100506
  2. LIMBITROL [Concomitant]
     Dosage: 5 - 12.5 MG DAILY
  3. SIMVASTATIN [Concomitant]
     Dosage: 20 MG, QD
  4. KLONOPIN [Concomitant]
     Dosage: 0.5 MG, QD
  5. VITAMIN D3 [Concomitant]
     Dosage: 1000 IU, UNK
  6. FLEXERIL [Concomitant]
     Dosage: 10 MG (ONE IN THE MORNING AND ONE AT NIGHT)

REACTIONS (5)
  - GAIT DISTURBANCE [None]
  - MEMORY IMPAIRMENT [None]
  - MUSCLE SPASMS [None]
  - PAIN [None]
  - ROAD TRAFFIC ACCIDENT [None]
